FAERS Safety Report 5334572-X (Version None)
Quarter: 2007Q2

REPORT INFORMATION
  Report Type: 
  Country: None (occurrence: None)
  Receive Date: 20070525
  Receipt Date: 20070521
  Transmission Date: 20071010
  Serious: Yes (Other)
  Sender: FDA-Public Use
  Company Number: GB-AVENTIS-200713874GDDC

PATIENT
  Age: 70 Year
  Sex: Male

DRUGS (2)
  1. EUGLUCON [Suspect]
     Route: 048
     Dates: start: 20070416, end: 20070416
  2. GLUCOSE [Concomitant]
     Dosage: DOSE: UNK

REACTIONS (2)
  - ACCIDENTAL EXPOSURE [None]
  - HYPOGLYCAEMIA [None]
